FAERS Safety Report 12508512 (Version 1)
Quarter: 2016Q2

REPORT INFORMATION
  Report Type: Spontaneous
  Country: US (occurrence: US)
  Receive Date: 20160629
  Receipt Date: 20160629
  Transmission Date: 20160815
  Serious: No
  Sender: FDA-Public Use
  Company Number: US-AMGEN-USASP2015135524

PATIENT
  Age: 64 Year
  Sex: Female
  Weight: 55.33 kg

DRUGS (1)
  1. PROLIA [Suspect]
     Active Substance: DENOSUMAB
     Indication: OSTEOPOROSIS POSTMENOPAUSAL
     Dosage: 60 MG, Q6MO
     Route: 058
     Dates: start: 20141024

REACTIONS (4)
  - Osteoarthritis [Unknown]
  - Pain in extremity [Unknown]
  - Vaginal infection [Unknown]
  - Photopsia [Unknown]

NARRATIVE: CASE EVENT DATE: 20151214
